FAERS Safety Report 19171998 (Version 1)
Quarter: 2021Q2

REPORT INFORMATION
  Report Type: Spontaneous
  Country: JP (occurrence: JP)
  Receive Date: 20210423
  Receipt Date: 20210423
  Transmission Date: 20210717
  Serious: Yes (Hospitalization, Congenital Anomaly)
  Sender: FDA-Public Use
  Company Number: JP-NOVOPROD-804523

PATIENT
  Sex: Male
  Weight: 1.3 kg

DRUGS (13)
  1. NOVORAPID [Suspect]
     Active Substance: INSULIN ASPART
     Dosage: DOSES WERE INCREASED UP TO ABOUT 100 UNITS PER DAY
     Route: 064
  2. UTEMERIN [Concomitant]
     Active Substance: RITODRINE
     Indication: PRODUCT USED FOR UNKNOWN INDICATION
     Dosage: UNK
     Route: 064
  3. BETAMETHASONE. [Concomitant]
     Active Substance: BETAMETHASONE
     Indication: MATERNAL THERAPY TO ENHANCE FOETAL LUNG MATURITY
     Dosage: UNK
     Route: 064
  4. LEVEMIR [Suspect]
     Active Substance: INSULIN DETEMIR
     Dosage: 20 UNITS
     Route: 064
  5. LEVEMIR [Suspect]
     Active Substance: INSULIN DETEMIR
     Dosage: 12 UNITS
     Route: 064
  6. LEVEMIR [Suspect]
     Active Substance: INSULIN DETEMIR
     Dosage: DOSES WERE INCREASED UP TO ABOUT 100 UNITS PER DAY
     Route: 064
  7. NOVORAPID [Suspect]
     Active Substance: INSULIN ASPART
     Dosage: 70 UNITS
     Route: 064
  8. NOVORAPID [Suspect]
     Active Substance: INSULIN ASPART
     Indication: GESTATIONAL DIABETES
     Dosage: UNK
     Route: 064
  9. NOVORAPID [Suspect]
     Active Substance: INSULIN ASPART
     Dosage: 75 UNITS
     Route: 064
  10. RITODRINE [Concomitant]
     Active Substance: RITODRINE
     Indication: PRODUCT USED FOR UNKNOWN INDICATION
     Dosage: UNK
     Route: 064
  11. NOVORAPID [Suspect]
     Active Substance: INSULIN ASPART
     Dosage: 65 UNITS
     Route: 064
  12. LEVEMIR [Suspect]
     Active Substance: INSULIN DETEMIR
     Indication: GESTATIONAL DIABETES
     Dosage: UNK
     Route: 064
  13. LEVEMIR [Suspect]
     Active Substance: INSULIN DETEMIR
     Dosage: 18 UNITS
     Route: 064

REACTIONS (5)
  - Foetal exposure during pregnancy [Recovered/Resolved]
  - Low birth weight baby [Unknown]
  - Congenital pulmonary hypertension [Unknown]
  - Ventricular septal defect [Unknown]
  - Premature baby [Unknown]
